FAERS Safety Report 7813406-5 (Version None)
Quarter: 2011Q4

REPORT INFORMATION
  Report Type: 
  Country: None (occurrence: None)
  Receive Date: 20111014
  Receipt Date: 20111005
  Transmission Date: 20120403
  Serious: Yes (Hospitalization, Other)
  Sender: FDA-Public Use
  Company Number: US-BIOGENIDEC-2008BI021639

PATIENT
  Age: 30 Year
  Sex: Female

DRUGS (2)
  1. TYSABRI [Suspect]
     Indication: MULTIPLE SCLEROSIS
     Route: 042
     Dates: start: 20080417, end: 20080806
  2. TYSABRI [Suspect]
     Route: 042
     Dates: start: 20090306

REACTIONS (7)
  - MULTIPLE SCLEROSIS RELAPSE [None]
  - DIZZINESS [None]
  - FUNGAL ABSCESS CENTRAL NERVOUS SYSTEM [None]
  - CENTRAL NERVOUS SYSTEM LESION [None]
  - CONVULSION [None]
  - NUCLEAR MAGNETIC RESONANCE IMAGING BRAIN ABNORMAL [None]
  - DYSARTHRIA [None]
